FAERS Safety Report 11349932 (Version 1)
Quarter: 2015Q3

REPORT INFORMATION
  Report Type: Spontaneous
  Country: US (occurrence: US)
  Receive Date: 20150807
  Receipt Date: 20150807
  Transmission Date: 20151125
  Serious: No
  Sender: FDA-Public Use
  Company Number: US-DRREDDYS-USA/USA/15/0045572

PATIENT
  Age: 82 Year
  Sex: Male
  Weight: 65.7 kg

DRUGS (2)
  1. LEVOFLOXACIN TABLETS 750 MG [Suspect]
     Active Substance: LEVOFLOXACIN
     Indication: BRONCHITIS
     Route: 048
     Dates: start: 20150110, end: 20150114
  2. PREDNISONE. [Concomitant]
     Active Substance: PREDNISONE
     Indication: PRODUCT USED FOR UNKNOWN INDICATION
     Route: 065
     Dates: start: 20150110, end: 20150114

REACTIONS (2)
  - Fall [Unknown]
  - Tendon pain [Recovered/Resolved]

NARRATIVE: CASE EVENT DATE: 20150121
